FAERS Safety Report 13624789 (Version 2)
Quarter: 2017Q2

REPORT INFORMATION
  Report Type: Spontaneous
  Country: CN (occurrence: CN)
  Receive Date: 20170608
  Receipt Date: 20170628
  Transmission Date: 20170830
  Serious: Yes (Other)
  Sender: FDA-Public Use
  Company Number: CN-APOTEX-2017AP012691

PATIENT

DRUGS (5)
  1. SEROXAT [Suspect]
     Active Substance: PAROXETINE HYDROCHLORIDE
     Indication: PANIC DISORDER
  2. METOPROLOL. [Suspect]
     Active Substance: METOPROLOL
     Indication: ARRHYTHMIA
     Dosage: 0.5 DF, QD
     Route: 048
     Dates: start: 2005, end: 2012
  3. ZOLOFT [Suspect]
     Active Substance: SERTRALINE HYDROCHLORIDE
     Indication: PANIC DISORDER
     Dosage: UNK UNK, UNKNOWN
     Route: 048
  4. SEROXAT [Suspect]
     Active Substance: PAROXETINE HYDROCHLORIDE
     Indication: GENERALISED ANXIETY DISORDER
     Dosage: 2 DF, QD
     Route: 048
     Dates: start: 2004, end: 201206
  5. ZOLOFT [Suspect]
     Active Substance: SERTRALINE HYDROCHLORIDE
     Indication: GENERALISED ANXIETY DISORDER
     Dosage: 2 DF, QD
     Route: 048
     Dates: start: 201206, end: 201512

REACTIONS (8)
  - Heart rate increased [Unknown]
  - Tachycardia [Unknown]
  - Panic disorder [Recovering/Resolving]
  - Impaired work ability [Not Recovered/Not Resolved]
  - Drug ineffective [Unknown]
  - Generalised anxiety disorder [Recovering/Resolving]
  - Xerophthalmia [Recovering/Resolving]
  - Condition aggravated [Unknown]

NARRATIVE: CASE EVENT DATE: 2005
